FAERS Safety Report 9257400 (Version 1)
Quarter: 2013Q2

REPORT INFORMATION
  Report Type: Spontaneous
  Country: CA (occurrence: None)
  Receive Date: 20130418
  Receipt Date: 20130418
  Transmission Date: 20140414
  Serious: Yes (Other)
  Sender: FDA-Public Use
  Company Number: IMP_06663_2013

PATIENT
  Age: 38 Year
  Sex: Male

DRUGS (4)
  1. BUPROPION [Suspect]
     Indication: PRODUCT USED FOR UNKNOWN INDICATION
     Dosage: (15 DF 1X, [CRUSHED TABLETS AND INSUFFLATED THEM] NASAL)
  2. GLYBURIDE [Concomitant]
  3. METFORMIN [Concomitant]
  4. OLANZAPINE [Concomitant]

REACTIONS (7)
  - Drug abuse [None]
  - Grand mal convulsion [None]
  - Incorrect route of drug administration [None]
  - Euphoric mood [None]
  - Blood glucose increased [None]
  - Heart rate increased [None]
  - Substance abuse [None]
